FAERS Safety Report 12856865 (Version 1)
Quarter: 2016Q4

REPORT INFORMATION
  Report Type: Spontaneous
  Country: US (occurrence: US)
  Receive Date: 20161018
  Receipt Date: 20161018
  Transmission Date: 20170207
  Serious: No
  Sender: FDA-Public Use
  Company Number: US-PFIZER INC-2016484093

PATIENT
  Sex: Female
  Weight: 73 kg

DRUGS (3)
  1. LYRICA [Suspect]
     Active Substance: PREGABALIN
     Dosage: 3X/DAY, ^EITHER 425MG OR 450MG A DAY^
     Route: 048
  2. LYRICA [Suspect]
     Active Substance: PREGABALIN
     Indication: FIBROMYALGIA
     Dosage: UNK
     Dates: start: 201606
  3. LYRICA [Suspect]
     Active Substance: PREGABALIN
     Dosage: 350 MG, 1X/DAY

REACTIONS (1)
  - Drug ineffective [Not Recovered/Not Resolved]
